FAERS Safety Report 12507230 (Version 1)
Quarter: 2016Q2

REPORT INFORMATION
  Report Type: Spontaneous
  Country: JP (occurrence: JP)
  Receive Date: 20160629
  Receipt Date: 20160629
  Transmission Date: 20160815
  Serious: Yes (Death, Other)
  Sender: FDA-Public Use
  Company Number: JP-ROCHE-1761625

PATIENT
  Age: 75 Year
  Sex: Male

DRUGS (3)
  1. TS-1 [Concomitant]
     Active Substance: GIMERACIL\OTERACIL\TEGAFUR
     Indication: COLON CANCER
     Dosage: DOSAGE IS UNCERTAIN.
     Route: 048
     Dates: start: 20160114, end: 20160404
  2. AVASTIN [Suspect]
     Active Substance: BEVACIZUMAB
     Indication: COLON CANCER
     Route: 041
     Dates: start: 20160114, end: 20160404
  3. IRINOTECAN HYDROCHLORIDE. [Concomitant]
     Active Substance: IRINOTECAN HYDROCHLORIDE
     Indication: COLON CANCER
     Dosage: DOSAGE IS UNCERTAIN.
     Route: 041
     Dates: start: 20160303

REACTIONS (7)
  - Disseminated intravascular coagulation [Unknown]
  - Diarrhoea [Recovered/Resolved]
  - Ureteric stenosis [Recovering/Resolving]
  - Colitis ischaemic [Unknown]
  - Thrombocytopenia [Not Recovered/Not Resolved]
  - Renal impairment [Unknown]
  - Rectal cancer [Fatal]

NARRATIVE: CASE EVENT DATE: 201604
